FAERS Safety Report 22000549 (Version 1)
Quarter: 2023Q1

REPORT INFORMATION
  Report Type: Spontaneous
  Country: US (occurrence: US)
  Receive Date: 20230216
  Receipt Date: 20230216
  Transmission Date: 20230418
  Serious: No
  Sender: FDA-Public Use
  Company Number: US-SA-SAC20230214001176

PATIENT
  Age: 74 Year
  Sex: Female
  Weight: 68.04 kg

DRUGS (6)
  1. DUPIXENT [Suspect]
     Active Substance: DUPILUMAB
     Indication: Dermatitis atopic
     Dosage: 300 MG, QOW
     Route: 058
     Dates: start: 20220812
  2. ALBUTEROL SULFATE [Concomitant]
     Active Substance: ALBUTEROL SULFATE
     Dosage: 108 (90 BASE)
     Route: 055
     Dates: start: 20220812
  3. ASPIRIN [Concomitant]
     Active Substance: ASPIRIN
     Dosage: 81 MG
     Route: 048
     Dates: start: 20230110
  4. DESONIDE [Concomitant]
     Active Substance: DESONIDE
     Dosage: UNK
     Dates: start: 20220812
  5. PANTOPRAZOLE SODIUM ANHYDROUS [Concomitant]
     Active Substance: PANTOPRAZOLE SODIUM ANHYDROUS
     Dosage: 40 MG
     Route: 048
     Dates: start: 20231001
  6. PREDNISONE [Concomitant]
     Active Substance: PREDNISONE
     Dosage: 10 MG
     Route: 048
     Dates: start: 20220812

REACTIONS (4)
  - Paraesthesia [Unknown]
  - Back pain [Unknown]
  - Vaginal discharge [Unknown]
  - Insomnia [Unknown]

NARRATIVE: CASE EVENT DATE: 20230130
